FAERS Safety Report 16407097 (Version 2)
Quarter: 2019Q3

REPORT INFORMATION
  Report Type: Spontaneous
  Country: US (occurrence: US)
  Receive Date: 20190608
  Receipt Date: 20190703
  Transmission Date: 20191004
  Serious: Yes (Other)
  Sender: FDA-Public Use
  Company Number: US-JNJFOC-20190543106

PATIENT
  Age: 77 Year
  Sex: Female
  Weight: 72.64 kg

DRUGS (3)
  1. LOPERAMIDE/SIMETHICONE COATED TABLET [Suspect]
     Active Substance: DIMETHICONE\LOPERAMIDE HYDROCHLORIDE
     Route: 048
     Dates: start: 20190525
  2. LOPERAMIDE/SIMETHICONE COATED TABLET [Suspect]
     Active Substance: DIMETHICONE\LOPERAMIDE HYDROCHLORIDE
     Route: 048
  3. LOPERAMIDE/SIMETHICONE COATED TABLET [Suspect]
     Active Substance: DIMETHICONE\LOPERAMIDE HYDROCHLORIDE
     Indication: DIARRHOEA
     Route: 048

REACTIONS (1)
  - Choking [Recovering/Resolving]

NARRATIVE: CASE EVENT DATE: 20190525
